FAERS Safety Report 17100726 (Version 1)
Quarter: 2019Q4

REPORT INFORMATION
  Report Type: Spontaneous
  Country: US (occurrence: US)
  Receive Date: 20191202
  Receipt Date: 20191202
  Transmission Date: 20200122
  Serious: No
  Sender: FDA-Public Use
  Company Number: US-SA-2019SA327836

PATIENT
  Age: 20 Year
  Sex: Male
  Weight: 61.2 kg

DRUGS (1)
  1. DUPIXENT [Suspect]
     Active Substance: DUPILUMAB
     Indication: DERMATITIS ATOPIC
     Dosage: 300 MG, QOW
     Route: 058
     Dates: start: 20190726

REACTIONS (4)
  - Nasopharyngitis [Unknown]
  - Condition aggravated [Unknown]
  - Pain in extremity [Unknown]
  - Incorrect dose administered [Unknown]
